FAERS Safety Report 8785091 (Version 1)
Quarter: 2012Q4

REPORT INFORMATION
  Report Type: Spontaneous
  Country: GB (occurrence: None)
  Receive Date: 20120829
  Receipt Date: 20120829
  Transmission Date: 20130627
  Serious: Yes (Other)
  Sender: FDA-Public Use
  Company Number: B0824756A

PATIENT
  Age: 33 Year
  Sex: Female

DRUGS (5)
  1. LAMIVUDINE-HIV [Suspect]
  2. ZIDOVUDINE [Suspect]
  3. NEVIRAPINE [Suspect]
  4. STEROID [Concomitant]
  5. CO-TRIMOXAZOLE [Concomitant]

REACTIONS (9)
  - Immune reconstitution inflammatory syndrome [None]
  - Cough [None]
  - Pyrexia [None]
  - Dyspnoea [None]
  - Weight decreased [None]
  - Respiratory failure [None]
  - Pneumocystis jiroveci infection [None]
  - Night sweats [None]
  - Mycobacterial infection [None]
